FAERS Safety Report 10987057 (Version 1)
Quarter: 2015Q1

REPORT INFORMATION
  Report Type: Spontaneous
  Country: US (occurrence: None)
  Receive Date: 20150317
  Receipt Date: 20150317
  Transmission Date: 20150721
  Serious: Yes (Other)
  Sender: FDA-Public Use
  Company Number: 2015AP005929

PATIENT
  Age: 62 Year
  Sex: Female

DRUGS (4)
  1. OMEPRAZOLE (OMEPRAZOLE) [Suspect]
     Active Substance: OMEPRAZOLE
     Indication: GASTROOESOPHAGEAL REFLUX DISEASE
     Dosage: 1 DR, SINGLE
     Dates: start: 201410, end: 201410
  2. MONTELUKAST SODIUM (MONTELUKAST) TABLET [Suspect]
     Active Substance: MONTELUKAST SODIUM
     Indication: ASTHMA
     Dosage: 1 DF, SINGLE
     Dates: start: 201410, end: 201410
  3. TURMERIC (CURCUMA LONGA RHIZOME) [Concomitant]
  4. PAPAYA ENZYME (AMYLASE, PAPAIN) [Concomitant]

REACTIONS (13)
  - Chest pain [None]
  - Abdominal discomfort [None]
  - Palpitations [None]
  - Drug ineffective [None]
  - Dyspnoea [None]
  - Suicidal ideation [None]
  - Pruritus [None]
  - Throat tightness [None]
  - Gastrooesophageal reflux disease [None]
  - Urticaria [None]
  - Swollen tongue [None]
  - Regurgitation [None]
  - Feeling abnormal [None]

NARRATIVE: CASE EVENT DATE: 201410
